FAERS Safety Report 8260975-X (Version None)
Quarter: 2012Q2

REPORT INFORMATION
  Report Type: 
  Country: None (occurrence: None)
  Receive Date: 20120405
  Receipt Date: 20120404
  Transmission Date: 20120825
  Serious: No
  Sender: FDA-Public Use
  Company Number: US-PFIZER INC-2012076920

PATIENT
  Sex: Male
  Weight: 66.667 kg

DRUGS (3)
  1. IRON [Concomitant]
     Dosage: 325 MG, UNK
  2. GENOTROPIN [Suspect]
     Dosage: 12 MG, (INJECT 2.2 MG DAILY EVERY 24 HOURS)
     Route: 058
  3. LEVOTHYROXINE [Concomitant]
     Dosage: 25 UG, UNK

REACTIONS (3)
  - FATIGUE [None]
  - INJECTION SITE REACTION [None]
  - SINUSITIS [None]
